FAERS Safety Report 17300330 (Version 1)
Quarter: 2020Q1

REPORT INFORMATION
  Report Type: Spontaneous
  Country: US (occurrence: US)
  Receive Date: 20200122
  Receipt Date: 20200122
  Transmission Date: 20200409
  Serious: No
  Sender: FDA-Public Use
  Company Number: US-ALLERGAN-1900418US

PATIENT
  Sex: Female

DRUGS (5)
  1. RESTASIS [Suspect]
     Active Substance: CYCLOSPORINE
     Dosage: UNK UNK, BID
     Route: 047
  2. EFFEXOR [Concomitant]
     Active Substance: VENLAFAXINE HYDROCHLORIDE
     Indication: PANIC ATTACK
  3. VITAMIN B12 [Concomitant]
     Active Substance: CYANOCOBALAMIN
  4. RESTASIS [Suspect]
     Active Substance: CYCLOSPORINE
     Indication: DRY EYE
     Dosage: 1 GTT, BID
     Route: 047
     Dates: start: 201902
  5. UNSPECIFIED MEDICATION FOR BLOOD PRESSURE [Concomitant]
     Indication: BLOOD PRESSURE MEASUREMENT

REACTIONS (4)
  - Drug ineffective [Not Recovered/Not Resolved]
  - Product physical consistency issue [Unknown]
  - Vision blurred [Recovered/Resolved]
  - Vision blurred [Not Recovered/Not Resolved]

NARRATIVE: CASE EVENT DATE: 2016
